FAERS Safety Report 8433772-X (Version None)
Quarter: 2012Q2

REPORT INFORMATION
  Report Type: 
  Country: None (occurrence: None)
  Receive Date: 20120613
  Receipt Date: 20120606
  Transmission Date: 20120825
  Serious: Yes (Hospitalization)
  Sender: FDA-Public Use
  Company Number: JP-PFIZER INC-2011040038

PATIENT
  Age: 6 Year
  Sex: Female
  Weight: 11.6 kg

DRUGS (2)
  1. SOMATROPIN [Suspect]
     Indication: SMALL FOR DATES BABY
     Dosage: 0.4 MG, 1X/DAY
     Route: 058
     Dates: start: 20100817, end: 20101214
  2. SOMATROPIN [Suspect]
     Dosage: 0.4 OR 0.5 MG DAILY
     Route: 058
     Dates: start: 20101215, end: 20110216

REACTIONS (1)
  - NEPHROTIC SYNDROME [None]
